FAERS Safety Report 24558749 (Version 1)
Quarter: 2024Q4

REPORT INFORMATION
  Report Type: Spontaneous
  Country: US (occurrence: US)
  Receive Date: 20241029
  Receipt Date: 20241029
  Transmission Date: 20250115
  Serious: No
  Sender: PADAGIS
  Company Number: US-PADAGIS-2024PAD01687

PATIENT

DRUGS (1)
  1. FLUOCINOLONE ACETONIDE [Suspect]
     Active Substance: FLUOCINOLONE ACETONIDE
     Indication: Psoriasis
     Dosage: UNK
     Route: 061

REACTIONS (5)
  - Oral discomfort [Unknown]
  - Skin exfoliation [Not Recovered/Not Resolved]
  - Lip disorder [Not Recovered/Not Resolved]
  - Skin erosion [None]
  - Product use issue [Unknown]

NARRATIVE: CASE EVENT DATE: 20241019
